FAERS Safety Report 9294690 (Version 1)
Quarter: 2013Q2

REPORT INFORMATION
  Report Type: Report from Study
  Country: CA (occurrence: CA)
  Receive Date: 20130517
  Receipt Date: 20130517
  Transmission Date: 20140414
  Serious: Yes (Disabling)
  Sender: FDA-Public Use
  Company Number: CA-JNJFOC-20130507628

PATIENT
  Age: 32 Year
  Sex: Male

DRUGS (1)
  1. REMICADE [Suspect]
     Indication: CROHN^S DISEASE
     Dosage: START DATE: POSSIBLY 18-DEC-2012
     Route: 042
     Dates: start: 201212

REACTIONS (2)
  - Arthritis [Not Recovered/Not Resolved]
  - Painful respiration [Not Recovered/Not Resolved]
